FAERS Safety Report 8071247-0 (Version None)
Quarter: 2012Q1

REPORT INFORMATION
  Report Type: 
  Country: None (occurrence: None)
  Receive Date: 20120125
  Receipt Date: 20120119
  Transmission Date: 20120608
  Serious: No
  Sender: FDA-Public Use
  Company Number: US-B.I. PHARMACEUTICALS,INC./RIDGEFIELD-2012-BP-01197BP

PATIENT
  Age: 63 Year
  Sex: Male

DRUGS (1)
  1. SPIRIVA [Suspect]
     Dates: start: 20111229, end: 20120112

REACTIONS (4)
  - CHEST DISCOMFORT [None]
  - URINARY RETENTION [None]
  - DYSPNOEA [None]
  - DYSPHAGIA [None]
